FAERS Safety Report 25702763 (Version 1)
Quarter: 2025Q3

REPORT INFORMATION
  Report Type: Spontaneous
  Country: US (occurrence: US)
  Receive Date: 20250819
  Receipt Date: 20250819
  Transmission Date: 20251021
  Serious: No
  Sender: REGENERON
  Company Number: US-REGENERON PHARMACEUTICALS, INC.-2025-111698

PATIENT
  Sex: Female

DRUGS (1)
  1. PRALUENT [Suspect]
     Active Substance: ALIROCUMAB
     Indication: Blood cholesterol increased
     Dosage: 150 MG, Q2W, EVERY TWO WEEKS (STRENGTH- 150 MG/ML)
     Route: 058

REACTIONS (2)
  - Product preparation error [Unknown]
  - Product preparation error [Unknown]

NARRATIVE: CASE EVENT DATE: 20250627
